FAERS Safety Report 7671109-4 (Version None)
Quarter: 2011Q3

REPORT INFORMATION
  Report Type: 
  Country: None (occurrence: None)
  Receive Date: 20110809
  Receipt Date: 20110801
  Transmission Date: 20111222
  Serious: Yes (Death, Life-Threatening, Hospitalization)
  Sender: FDA-Public Use
  Company Number: CO-JNJFOC-20110205986

PATIENT
  Age: 6 Month
  Sex: Male

DRUGS (2)
  1. IBUPROFEN [Suspect]
     Indication: OTITIS MEDIA ACUTE
     Dosage: X 5 DAYS
  2. AMOXICILLIN [Suspect]
     Indication: OTITIS MEDIA ACUTE
     Dosage: X 5 DAYS

REACTIONS (4)
  - MULTI-ORGAN FAILURE [None]
  - NECROTISING FASCIITIS [None]
  - SEPTIC SHOCK [None]
  - DIARRHOEA HAEMORRHAGIC [None]
